FAERS Safety Report 9464571 (Version 3)
Quarter: 2014Q1

REPORT INFORMATION
  Report Type: Spontaneous
  Country: AU (occurrence: AU)
  Receive Date: 20130819
  Receipt Date: 20140321
  Transmission Date: 20141002
  Serious: Yes (Hospitalization, Other)
  Sender: FDA-Public Use
  Company Number: AU-JNJFOC-20130805747

PATIENT
  Age: 53 Year
  Sex: Female
  Weight: 110 kg

DRUGS (6)
  1. STELARA [Suspect]
     Indication: PSORIASIS
     Route: 058
     Dates: start: 20100110, end: 20130820
  2. CRESTOR [Concomitant]
     Route: 048
  3. LOVAN [Concomitant]
     Route: 048
  4. ASPIRIN [Concomitant]
     Route: 065
  5. MOBIC [Concomitant]
     Route: 065
  6. NEXIAM [Concomitant]
     Route: 065

REACTIONS (2)
  - Pneumonia [Recovered/Resolved]
  - Respiratory tract infection [Recovered/Resolved]
